FAERS Safety Report 5597201-6 (Version None)
Quarter: 2008Q1

REPORT INFORMATION
  Report Type: 
  Country: None (occurrence: None)
  Receive Date: 20080121
  Receipt Date: 20080115
  Transmission Date: 20080703
  Serious: Yes (Other)
  Sender: FDA-Public Use
  Company Number: DE-JNJFOC-20080102555

PATIENT
  Age: 70 Year
  Sex: Female
  Weight: 70 kg

DRUGS (3)
  1. BETADORM-D [Suspect]
     Indication: SLEEP DISORDER
     Route: 048
  2. CARMEN [Concomitant]
  3. ASPIRIN [Concomitant]

REACTIONS (3)
  - ANXIETY [None]
  - ASTHENIA [None]
  - DYSPNOEA [None]
